FAERS Safety Report 9169689 (Version 1)
Quarter: 2013Q1

REPORT INFORMATION
  Report Type: Report from Study
  Country: CA (occurrence: CA)
  Receive Date: 20130318
  Receipt Date: 20130318
  Transmission Date: 20140127
  Serious: Yes (Other)
  Sender: FDA-Public Use
  Company Number: CA-PFIZER INC-2013087594

PATIENT
  Age: 50 Year
  Sex: Male
  Weight: 80.7 kg

DRUGS (5)
  1. MS CONTIN [Suspect]
     Indication: PAIN
     Dosage: 100 MG, UNK
     Route: 065
     Dates: start: 20130305
  2. PEGINTERFERON ALFA-2B/RIBAVIRIN [Concomitant]
     Indication: HEPATITIS C
     Dosage: UNK
  3. BOCEPREVIR [Concomitant]
     Indication: HEPATITIS C
     Dosage: UNK
  4. INTERFERON [Concomitant]
     Indication: HEPATITIS C
     Dosage: UNK
  5. ENSURE [Concomitant]
     Indication: DECREASED APPETITE
     Dosage: UNK

REACTIONS (8)
  - Drug ineffective [Not Recovered/Not Resolved]
  - Decreased appetite [Not Recovered/Not Resolved]
  - Visual impairment [Not Recovered/Not Resolved]
  - Insomnia [Not Recovered/Not Resolved]
  - Mobility decreased [Not Recovered/Not Resolved]
  - Nasopharyngitis [Recovering/Resolving]
  - Asthenia [Not Recovered/Not Resolved]
  - Cough [Recovering/Resolving]
